FAERS Safety Report 25574663 (Version 1)
Quarter: 2025Q3

REPORT INFORMATION
  Report Type: Spontaneous
  Country: JP (occurrence: JP)
  Receive Date: 20250718
  Receipt Date: 20250718
  Transmission Date: 20251020
  Serious: Yes (Death, Other)
  Sender: ROCHE
  Company Number: JP-CHUGAI-2025022151

PATIENT
  Age: 50 Year
  Sex: Male

DRUGS (6)
  1. ACTEMRA [Suspect]
     Active Substance: TOCILIZUMAB
     Indication: Acute haemorrhagic leukoencephalitis
     Route: 065
  2. ACTEMRA [Suspect]
     Active Substance: TOCILIZUMAB
     Indication: Cytokine storm
  3. HUMAN IMMUNOGLOBULIN G [Concomitant]
     Active Substance: HUMAN IMMUNOGLOBULIN G
     Indication: Acute haemorrhagic leukoencephalitis
     Route: 042
  4. HUMAN IMMUNOGLOBULIN G [Concomitant]
     Active Substance: HUMAN IMMUNOGLOBULIN G
     Indication: Cytokine storm
  5. PERAMIVIR [Concomitant]
     Active Substance: PERAMIVIR
     Route: 065
  6. METHYLPREDNISOLONE [Concomitant]
     Active Substance: METHYLPREDNISOLONE
     Route: 065

REACTIONS (7)
  - Acute kidney injury [Unknown]
  - Respiratory arrest [Unknown]
  - Shock [Unknown]
  - Areflexia [Unknown]
  - Liver disorder [Unknown]
  - Disease progression [Fatal]
  - Off label use [Unknown]
